FAERS Safety Report 6003134-3 (Version None)
Quarter: 2008Q4

REPORT INFORMATION
  Report Type: 
  Country: None (occurrence: None)
  Receive Date: 20081212
  Receipt Date: 20081212
  Transmission Date: 20090506
  Serious: Yes (Hospitalization)
  Sender: FDA-Public Use
  Company Number: None

PATIENT
  Age: 83 Year
  Sex: Male
  Weight: 92.5 kg

DRUGS (13)
  1. RISPERIDONE [Suspect]
     Indication: DEMENTIA ALZHEIMER'S TYPE
     Dosage: 0.25MG -1.0MG PO;  1.25MG PO TOTAL DOSE
     Route: 048
     Dates: start: 20070921, end: 20080813
  2. RISPERIDONE [Suspect]
     Indication: DEMENTIA ALZHEIMER'S TYPE
     Dosage: 0.25MG -1.0MG PO;  1.25MG PO TOTAL DOSE
     Route: 048
     Dates: start: 20080526, end: 20080915
  3. AMLODIPINE [Concomitant]
  4. BRIMONIDINE TARTRATE [Concomitant]
  5. CITALOPRAM [Concomitant]
  6. DORZOLOMIDE [Concomitant]
  7. FINASTERIDE [Concomitant]
  8. GLIPIZIDE [Concomitant]
  9. OXYBUTYNIN CL [Concomitant]
  10. RIVASTIGMINE [Concomitant]
  11. SIMVASTATIN [Concomitant]
  12. MEMANTINE HCL [Concomitant]
  13. SODIUM POLYSTYRENE [Concomitant]

REACTIONS (1)
  - BRADYCARDIA [None]
